FAERS Safety Report 7750887-X (Version None)
Quarter: 2011Q3

REPORT INFORMATION
  Report Type: 
  Country: None (occurrence: None)
  Receive Date: 20110914
  Receipt Date: 20110914
  Transmission Date: 20111222
  Serious: Yes (Other)
  Sender: FDA-Public Use
  Company Number: US-ABBOTT-11P-163-0694789-00

PATIENT
  Sex: Female

DRUGS (3)
  1. HUMIRA [Suspect]
     Indication: RHEUMATOID ARTHRITIS
     Route: 058
     Dates: start: 20040101
  2. PRERUXIA [Concomitant]
     Indication: PRODUCT USED FOR UNKNOWN INDICATION
     Dosage: 1 DAILY
  3. LABETALOL HCL [Concomitant]
     Indication: HYPERTENSION

REACTIONS (4)
  - PRE-ECLAMPSIA [None]
  - RHEUMATOID ARTHRITIS [None]
  - ARTHRALGIA [None]
  - JOINT SWELLING [None]
